FAERS Safety Report 8583658-5 (Version None)
Quarter: 2012Q3

REPORT INFORMATION
  Report Type: 
  Country: None (occurrence: None)
  Receive Date: 20120809
  Receipt Date: 20120608
  Transmission Date: 20120928
  Serious: No
  Sender: FDA-Public Use
  Company Number: US-009507513-2012SP021289

PATIENT
  Sex: Male
  Weight: 74.84 kg

DRUGS (2)
  1. MINOCYCLINE HCL [Concomitant]
     Indication: ACNE
     Dosage: UNK UNK, UNKNOWN
  2. CLARITIN REDITABS [Suspect]
     Indication: SEASONAL ALLERGY
     Dosage: 10 MG, UNKNOWN
     Route: 048
     Dates: start: 20120301

REACTIONS (1)
  - DRUG INEFFECTIVE [None]
